FAERS Safety Report 16010881 (Version 1)
Quarter: 2019Q1

REPORT INFORMATION
  Report Type: Spontaneous
  Country: CN (occurrence: CN)
  Receive Date: 20190227
  Receipt Date: 20190227
  Transmission Date: 20190418
  Serious: Yes (Other)
  Sender: FDA-Public Use
  Company Number: CN-ROCHE-2270281

PATIENT
  Age: 31 Year
  Sex: Male

DRUGS (5)
  1. OXALIPLATIN. [Concomitant]
     Active Substance: OXALIPLATIN
     Indication: METASTATIC NEOPLASM
  2. FLUOROURACIL. [Concomitant]
     Active Substance: FLUOROURACIL
     Indication: METASTATIC NEOPLASM
     Dosage: DAY 1 TO DAY 14, ONCE PER 3 WEEK
     Route: 048
     Dates: start: 20160714, end: 20160826
  3. FLUOROURACIL. [Concomitant]
     Active Substance: FLUOROURACIL
     Indication: TUMOUR ULCERATION
     Dosage: 1000-1500MG, DAY1 TO DAY14, ONCE 21 DAYS
     Route: 065
     Dates: start: 20160920
  4. OXALIPLATIN. [Concomitant]
     Active Substance: OXALIPLATIN
     Indication: TUMOUR ULCERATION
     Dosage: AT DAY 1, ONCE PER 3 WEEK
     Route: 065
     Dates: start: 20160415, end: 20160826
  5. XELODA [Suspect]
     Active Substance: CAPECITABINE
     Indication: TUMOUR ULCERATION
     Dosage: DAY 1 TO DAY 14, ONCE 3 WEEK
     Route: 065
     Dates: start: 20160415

REACTIONS (2)
  - Drug intolerance [Unknown]
  - Hepatic cyst [Unknown]
